FAERS Safety Report 7055281-5 (Version None)
Quarter: 2010Q4

REPORT INFORMATION
  Report Type: 
  Country: None (occurrence: None)
  Receive Date: 20101020
  Receipt Date: 20101020
  Transmission Date: 20110411
  Serious: Yes (Hospitalization, Other)
  Sender: FDA-Public Use
  Company Number: None

PATIENT
  Age: 77 Year
  Sex: Male
  Weight: 64.4108 kg

DRUGS (1)
  1. ARICEPT [Suspect]
     Indication: DEMENTIA
     Dates: start: 20100905, end: 20100915

REACTIONS (3)
  - FEAR [None]
  - PARANOIA [None]
  - STRESS [None]
